FAERS Safety Report 6894967-X (Version None)
Quarter: 2010Q3

REPORT INFORMATION
  Report Type: 
  Country: None (occurrence: None)
  Receive Date: 20100728
  Receipt Date: 20100713
  Transmission Date: 20110219
  Serious: Yes (Hospitalization)
  Sender: FDA-Public Use
  Company Number: 2010-2487

PATIENT
  Sex: Male

DRUGS (7)
  1. SOMATULINE DEPOT [Suspect]
     Indication: GASTROINTESTINAL DISORDER
     Dosage: 120 MG, 1 IN 28 D, INTRAMUSCULAR
     Route: 030
     Dates: start: 20090608
  2. SOMATULINE DEPOT [Suspect]
  3. SOMATULINE DEPOT [Suspect]
  4. SOMATULINE DEPOT [Suspect]
  5. SOMATULINE DEPOT [Suspect]
  6. SOMATULINE DEPOT [Suspect]
  7. SOMATULINE DEPOT [Suspect]

REACTIONS (1)
  - INTESTINAL FUNCTIONAL DISORDER [None]
